FAERS Safety Report 12350764 (Version 6)
Quarter: 2016Q3

REPORT INFORMATION
  Report Type: Report from Study
  Country: FR (occurrence: FR)
  Receive Date: 20160510
  Receipt Date: 20160722
  Transmission Date: 20161109
  Serious: Yes (Life-Threatening, Hospitalization, Other)
  Sender: FDA-Public Use
  Company Number: FR-JNJFOC-20160427151

PATIENT
  Age: 49 Year
  Sex: Female

DRUGS (29)
  1. TERCIAN [Suspect]
     Active Substance: CYAMEMAZINE
     Indication: PRODUCT USED FOR UNKNOWN INDICATION
     Dosage: 150 TABLETS
     Route: 048
  2. LEVOTHYROX [Suspect]
     Active Substance: LEVOTHYROXINE
     Indication: PRODUCT USED FOR UNKNOWN INDICATION
     Dosage: 30 TABLETS
     Route: 065
     Dates: start: 20160127
  3. TRAMADOL HYDROCHLORIDE. [Suspect]
     Active Substance: TRAMADOL HYDROCHLORIDE
     Indication: PRODUCT USED FOR UNKNOWN INDICATION
     Route: 048
     Dates: start: 20160109, end: 20160109
  4. STELARA [Suspect]
     Active Substance: USTEKINUMAB
     Indication: PSORIASIS
     Route: 058
     Dates: start: 201506, end: 20160109
  5. PARACETAMOL [Concomitant]
     Active Substance: ACETAMINOPHEN
     Route: 065
  6. MOBIC [Suspect]
     Active Substance: MELOXICAM
     Indication: PRODUCT USED FOR UNKNOWN INDICATION
     Dosage: 28 TABLETS
     Route: 065
     Dates: start: 20160109, end: 20160109
  7. MOBIC [Suspect]
     Active Substance: MELOXICAM
     Indication: PRODUCT USED FOR UNKNOWN INDICATION
     Route: 065
  8. ARCOXIA [Suspect]
     Active Substance: ETORICOXIB
     Indication: PRODUCT USED FOR UNKNOWN INDICATION
     Dosage: 28 TABLETS.
     Route: 065
     Dates: start: 20160109, end: 20160109
  9. TIORFAN [Concomitant]
     Active Substance: RACECADOTRIL
     Dosage: AS REQUIRED
     Route: 065
  10. MIOREL [Suspect]
     Active Substance: THIOCOLCHICOSIDE
     Indication: PRODUCT USED FOR UNKNOWN INDICATION
     Route: 048
     Dates: start: 20160109, end: 20160109
  11. MIOREL [Suspect]
     Active Substance: THIOCOLCHICOSIDE
     Indication: PRODUCT USED FOR UNKNOWN INDICATION
     Route: 048
  12. URAPIDIL [Concomitant]
     Active Substance: URAPIDIL
     Route: 065
  13. DIOSMECTITE [Concomitant]
     Active Substance: MONTMORILLONITE
     Route: 065
  14. STELARA [Suspect]
     Active Substance: USTEKINUMAB
     Indication: PSORIASIS
     Route: 058
     Dates: start: 20150226, end: 201506
  15. LEVOTHYROX [Suspect]
     Active Substance: LEVOTHYROXINE
     Indication: PRODUCT USED FOR UNKNOWN INDICATION
     Dosage: SINGLE (30 TABLETS)
     Route: 065
     Dates: start: 20160109, end: 20160109
  16. ARCOXIA [Suspect]
     Active Substance: ETORICOXIB
     Indication: PRODUCT USED FOR UNKNOWN INDICATION
     Dosage: 28 TABLETS
     Route: 065
  17. DIFFU-K [Suspect]
     Active Substance: POTASSIUM CHLORIDE
     Indication: PRODUCT USED FOR UNKNOWN INDICATION
     Route: 065
     Dates: start: 20160109, end: 20160109
  18. ZOCOR [Concomitant]
     Active Substance: SIMVASTATIN
     Route: 048
  19. ESOMEPRAZOLE MAGNESIUM. [Concomitant]
     Active Substance: ESOMEPRAZOLE MAGNESIUM
     Route: 065
  20. DIFFU-K [Suspect]
     Active Substance: POTASSIUM CHLORIDE
     Indication: PRODUCT USED FOR UNKNOWN INDICATION
     Route: 065
  21. TRAMADOL HYDROCHLORIDE. [Suspect]
     Active Substance: TRAMADOL HYDROCHLORIDE
     Indication: PRODUCT USED FOR UNKNOWN INDICATION
     Route: 048
  22. INEXIUM [Concomitant]
     Active Substance: ESOMEPRAZOLE
     Route: 048
  23. SACOLENE [Concomitant]
     Dosage: AS REQUIRED
     Route: 065
  24. LYRICA [Suspect]
     Active Substance: PREGABALIN
     Indication: PRODUCT USED FOR UNKNOWN INDICATION
     Dosage: 56 TABLETS
     Route: 048
  25. ARAVA [Concomitant]
     Active Substance: LEFLUNOMIDE
     Route: 065
  26. FORLAX [Concomitant]
     Active Substance: POLYETHYLENE GLYCOL 4000
     Dosage: FREQUENCY: AS REQUIRED
     Route: 048
  27. TERCIAN [Suspect]
     Active Substance: CYAMEMAZINE
     Indication: PRODUCT USED FOR UNKNOWN INDICATION
     Dosage: 150 TABLETS.
     Route: 048
     Dates: start: 20160109, end: 20160109
  28. LYRICA [Suspect]
     Active Substance: PREGABALIN
     Indication: PRODUCT USED FOR UNKNOWN INDICATION
     Route: 048
     Dates: start: 20160109, end: 20160109
  29. ENOXAPARIN SODIUM. [Concomitant]
     Active Substance: ENOXAPARIN SODIUM
     Route: 065

REACTIONS (14)
  - Cardio-respiratory arrest [Recovered/Resolved]
  - Intentional overdose [Recovered/Resolved]
  - Pneumonia [Recovered/Resolved]
  - Suicide attempt [Recovered/Resolved]
  - Amnesia [Unknown]
  - Thrombocytosis [Unknown]
  - Pneumonia staphylococcal [Recovered/Resolved]
  - Coma [Recovered/Resolved]
  - Dysphonia [Unknown]
  - Toxic encephalopathy [Unknown]
  - Acute respiratory distress syndrome [Recovered/Resolved]
  - Pneumonia haemophilus [Recovered/Resolved]
  - Hepatocellular injury [Recovered/Resolved]
  - Anaemia [Unknown]

NARRATIVE: CASE EVENT DATE: 20160109
